FAERS Safety Report 7339347-8 (Version None)
Quarter: 2011Q1

REPORT INFORMATION
  Report Type: 
  Country: None (occurrence: None)
  Receive Date: 20110308
  Receipt Date: 20110225
  Transmission Date: 20110831
  Serious: Yes (Death, Hospitalization, Other)
  Sender: FDA-Public Use
  Company Number: US-CELGENEUS-163-21880-11020871

PATIENT
  Sex: Male

DRUGS (14)
  1. REVLIMID [Suspect]
     Indication: WALDENSTROM'S MACROGLOBULINAEMIA
     Dosage: 5 MILLIGRAM
     Route: 048
     Dates: start: 20110111, end: 20110117
  2. DECADRON [Concomitant]
     Indication: RENAL AMYLOIDOSIS
  3. METOPROLOL TARTRATE [Concomitant]
     Route: 065
  4. OMEPRAZOLE [Concomitant]
     Route: 065
  5. NITROGLYCERIN [Concomitant]
     Route: 065
  6. ASA [Concomitant]
     Route: 065
  7. ISOSORBIDE MONONITRATE [Concomitant]
     Route: 065
  8. ONDANSETRON [Concomitant]
     Route: 065
  9. TERAZOSIN [Concomitant]
     Route: 065
  10. SIMVASTATIN [Concomitant]
     Route: 065
  11. IRON DEXTRAN [Concomitant]
     Route: 065
  12. REVLIMID [Suspect]
     Indication: RENAL AMYLOIDOSIS
  13. DECADRON [Concomitant]
     Route: 065
     Dates: start: 20110111
  14. FLUOXETINE [Concomitant]
     Route: 065

REACTIONS (10)
  - CARDIAC AMYLOIDOSIS [None]
  - BLOOD CREATININE INCREASED [None]
  - PYREXIA [None]
  - RENAL AMYLOIDOSIS [None]
  - ANAEMIA [None]
  - NAUSEA [None]
  - DELIRIUM [None]
  - RENAL FAILURE [None]
  - ABDOMINAL PAIN UPPER [None]
  - WALDENSTROM'S MACROGLOBULINAEMIA [None]
